FAERS Safety Report 8061870-1 (Version None)
Quarter: 2012Q1

REPORT INFORMATION
  Report Type: 
  Country: None (occurrence: None)
  Receive Date: 20120117
  Receipt Date: 20120110
  Transmission Date: 20120608
  Serious: Yes (Death)
  Sender: FDA-Public Use
  Company Number: 1000026999

PATIENT
  Age: 19 Year
  Sex: Male

DRUGS (6)
  1. NEURONTIN [Suspect]
  2. VALACYCLOVIR [Suspect]
  3. PROPRANOLOL HYDROCHLORIDE [Suspect]
  4. TRAZODONE HCL [Suspect]
  5. FLUVOXAMINE MALEATE [Suspect]
  6. LITHIUM CARBONATE [Suspect]

REACTIONS (2)
  - CARDIO-RESPIRATORY ARREST [None]
  - COMPLETED SUICIDE [None]
